FAERS Safety Report 6251094-2 (Version None)
Quarter: 2009Q2

REPORT INFORMATION
  Report Type: 
  Country: None (occurrence: None)
  Receive Date: 20090630
  Receipt Date: 20090624
  Transmission Date: 20091009
  Serious: Yes (Death)
  Sender: FDA-Public Use
  Company Number: DE-CELGENEUS-062-50794-09061860

PATIENT
  Sex: Female
  Weight: 62 kg

DRUGS (1)
  1. VIDAZA [Suspect]
     Route: 058
     Dates: start: 20090401

REACTIONS (1)
  - SUDDEN CARDIAC DEATH [None]
